FAERS Safety Report 16594415 (Version 2)
Quarter: 2019Q3

REPORT INFORMATION
  Report Type: Spontaneous
  Country: BR (occurrence: BR)
  Receive Date: 20190718
  Receipt Date: 20190801
  Transmission Date: 20191004
  Serious: Yes (Other)
  Sender: FDA-Public Use
  Company Number: BR-PFIZER INC-2019291209

PATIENT
  Sex: Female

DRUGS (1)
  1. ZOLTEC [Suspect]
     Active Substance: FLUCONAZOLE
     Dosage: UNK (2MG/ML)

REACTIONS (5)
  - Exposure to communicable disease [Unknown]
  - Accidental exposure to product [Unknown]
  - Psychological trauma [Unknown]
  - Product packaging issue [Unknown]
  - Blood pressure increased [Unknown]

NARRATIVE: CASE EVENT DATE: 20190701
